FAERS Safety Report 13931029 (Version 2)
Quarter: 2017Q3

REPORT INFORMATION
  Report Type: Spontaneous
  Country: CA (occurrence: CA)
  Receive Date: 20170902
  Receipt Date: 20170918
  Transmission Date: 20171127
  Serious: Yes (Other)
  Sender: FDA-Public Use
  Company Number: CA-AMGEN-CANSL2017085331

PATIENT
  Age: 75 Year
  Sex: Female
  Weight: 82.4 kg

DRUGS (5)
  1. PROLIA [Suspect]
     Active Substance: DENOSUMAB
     Indication: OSTEOPOROSIS POSTMENOPAUSAL
     Dosage: 60 MG, Q6MO
     Route: 058
     Dates: start: 20170116, end: 201706
  2. MTX [Concomitant]
     Active Substance: METHOTREXATE SODIUM
     Dosage: UNK
     Dates: start: 201611
  3. DEPO-MEDROL [Concomitant]
     Active Substance: METHYLPREDNISOLONE ACETATE
     Dosage: UNK, QMO
  4. CALCIUM, MAGNESIUM + VITAMIN D3 [Concomitant]
     Active Substance: CALCIUM\CHOLECALCIFEROL\MAGNESIUM
     Dosage: CA 333 MG, BID
  5. AMLODIPINE [Concomitant]
     Active Substance: AMLODIPINE BESYLATE
     Dosage: 2.5 MG, UNK

REACTIONS (12)
  - Eczema [Recovering/Resolving]
  - Hand deformity [Unknown]
  - Rash maculo-papular [Recovering/Resolving]
  - Post inflammatory pigmentation change [Unknown]
  - Renal impairment [Unknown]
  - Pain [Recovering/Resolving]
  - White blood cell count increased [Unknown]
  - Rash pruritic [Recovering/Resolving]
  - Neutrophil count increased [Unknown]
  - Muscle spasms [Unknown]
  - Red cell distribution width increased [Unknown]
  - Skin plaque [Unknown]

NARRATIVE: CASE EVENT DATE: 2017
